FAERS Safety Report 20377340 (Version 2)
Quarter: 2022Q1

REPORT INFORMATION
  Report Type: Spontaneous
  Country: JP (occurrence: JP)
  Receive Date: 20220126
  Receipt Date: 20220216
  Transmission Date: 20220424
  Serious: Yes (Death, Other)
  Sender: FDA-Public Use
  Company Number: JP-MSD-M2022-01150

PATIENT
  Age: 84 Year
  Sex: Male

DRUGS (5)
  1. MOLNUPIRAVIR [Suspect]
     Active Substance: MOLNUPIRAVIR
     Indication: COVID-19 treatment
     Dosage: 800 MILLIGRAM, BID
     Route: 050
     Dates: start: 20220112, end: 20220113
  2. SOTROVIMAB [Concomitant]
     Active Substance: SOTROVIMAB
     Dosage: UNK
     Route: 041
  3. ONGLYZA [SAXAGLIPTIN HYDROCHLORIDE] [Concomitant]
     Indication: Diabetes mellitus
     Dosage: UNK
     Route: 048
  4. VONOPRAZAN FUMARATE [Concomitant]
     Active Substance: VONOPRAZAN FUMARATE
     Dosage: UNK
     Route: 048
  5. INSULIN NOS [Concomitant]
     Active Substance: INSULIN NOS
     Dosage: UNK
     Route: 065

REACTIONS (3)
  - Pneumonia aspiration [Fatal]
  - Off label use [Unknown]
  - Product use issue [Unknown]

NARRATIVE: CASE EVENT DATE: 20220112
